FAERS Safety Report 9233310 (Version 1)
Quarter: 2013Q2

REPORT INFORMATION
  Report Type: Spontaneous
  Country: US (occurrence: US)
  Receive Date: 20130416
  Receipt Date: 20130416
  Transmission Date: 20140414
  Serious: No
  Sender: FDA-Public Use
  Company Number: US-BANPHARM-20130932

PATIENT
  Age: 14 Year
  Sex: Female
  Weight: 98.43 kg

DRUGS (1)
  1. ALEVE LIQUID GELS 220MG [Suspect]
     Indication: HEADACHE
     Dosage: 1 DF, ONCE,
     Route: 048

REACTIONS (3)
  - Speech disorder [Unknown]
  - Gait disturbance [Unknown]
  - Inappropriate affect [Unknown]
